FAERS Safety Report 5639543-1 (Version None)
Quarter: 2008Q1

REPORT INFORMATION
  Report Type: 
  Country: None (occurrence: None)
  Receive Date: 20080226
  Receipt Date: 20080220
  Transmission Date: 20080703
  Serious: Yes (Other)
  Sender: FDA-Public Use
  Company Number: US-MERCK-0706USA00451

PATIENT
  Age: 65 Year
  Sex: Female

DRUGS (2)
  1. FOSAMAX [Suspect]
     Indication: OSTEOPOROSIS
     Route: 048
     Dates: start: 19980101, end: 20060825
  2. FOSAMAX [Suspect]
     Route: 048

REACTIONS (7)
  - CHRONIC SINUSITIS [None]
  - GASTROOESOPHAGEAL REFLUX DISEASE [None]
  - HERNIA [None]
  - LARYNGITIS [None]
  - NASAL SEPTUM DEVIATION [None]
  - SINUSITIS [None]
  - TOOTH LOSS [None]
